FAERS Safety Report 5939406-8 (Version None)
Quarter: 2008Q4

REPORT INFORMATION
  Report Type: 
  Country: None (occurrence: None)
  Receive Date: 20081103
  Receipt Date: 20081027
  Transmission Date: 20090506
  Serious: Yes (Hospitalization)
  Sender: FDA-Public Use
  Company Number: DE-PFIZER INC-2008091240

PATIENT
  Age: 42 Year
  Sex: Male

DRUGS (8)
  1. ZELDOX (CAPSULES) [Suspect]
     Dosage: DAILY DOSE:240MG
     Route: 048
     Dates: start: 20060715
  2. SORTIS [Interacting]
     Dosage: DAILY DOSE:10MG
     Route: 048
  3. CYMBALTA [Interacting]
     Dosage: DAILY DOSE:30MG
     Dates: start: 20070719
  4. CIPRALEX [Interacting]
     Indication: DEPRESSION
     Dosage: DAILY DOSE:60MG
     Dates: start: 20060629
  5. SEROQUEL [Interacting]
     Dosage: DAILY DOSE:700MG
     Dates: start: 20060705
  6. TILIDINE [Interacting]
     Dosage: DAILY DOSE:400MG
  7. LAMOTRIGINE [Concomitant]
     Dosage: DAILY DOSE:200MG
     Dates: start: 20060805
  8. LITHIUM CARBONATE [Concomitant]

REACTIONS (2)
  - DRUG INTERACTION [None]
  - LIVER DISORDER [None]
